FAERS Safety Report 7562438-3 (Version None)
Quarter: 2011Q2

REPORT INFORMATION
  Report Type: 
  Country: None (occurrence: None)
  Receive Date: 20110621
  Receipt Date: 20110621
  Transmission Date: 20111010
  Serious: Yes (Other)
  Sender: FDA-Public Use
  Company Number: None

PATIENT
  Age: 19 Year
  Sex: Male
  Weight: 50 kg

DRUGS (7)
  1. FLONASE [Suspect]
  2. MULTI-VITAMIN [Concomitant]
  3. CISAPRIDE [Suspect]
     Indication: GASTROOESOPHAGEAL REFLUX DISEASE
     Dosage: 7MG P.O. QID
  4. CISAPRIDE [Suspect]
     Indication: GASTROINTESTINAL HYPOMOTILITY
     Dosage: 7MG P.O. QID
  5. SINGULAIR [Suspect]
  6. ATIVAN [Concomitant]
  7. DIGOXIN [Suspect]

REACTIONS (1)
  - ELECTROCARDIOGRAM QT PROLONGED [None]
